FAERS Safety Report 7312699-0 (Version None)
Quarter: 2011Q1

REPORT INFORMATION
  Report Type: 
  Country: None (occurrence: None)
  Receive Date: 20110224
  Receipt Date: 20101115
  Transmission Date: 20110831
  Serious: No
  Sender: FDA-Public Use
  Company Number: US-ASTRAZENECA-2010SE54386

PATIENT
  Age: 21826 Day
  Sex: Female
  Weight: 82.1 kg

DRUGS (3)
  1. LEVOTHYROXINE SODIUM [Concomitant]
  2. LISINOPRIL [Concomitant]
  3. VIMOVO [Suspect]
     Indication: ARTHRITIS
     Dosage: BID
     Route: 048
     Dates: start: 20101110

REACTIONS (5)
  - DIARRHOEA [None]
  - BACK PAIN [None]
  - MUSCULOSKELETAL PAIN [None]
  - MUSCLE SPASMS [None]
  - PAIN [None]
